FAERS Safety Report 9954424 (Version 1)
Quarter: 2014Q1

REPORT INFORMATION
  Report Type: Spontaneous
  Country: NZ (occurrence: NZ)
  Receive Date: 20140304
  Receipt Date: 20140304
  Transmission Date: 20141002
  Serious: Yes (Other)
  Sender: FDA-Public Use
  Company Number: NZ-MYLANLABS-2014S1004096

PATIENT
  Age: 77 Year
  Sex: Male

DRUGS (3)
  1. CLOZAPINE [Suspect]
     Dosage: 12.5 MG/D, THEN TITRATED TO 250 MG/D OVER 3W
     Route: 065
  2. CLOZAPINE [Suspect]
     Dosage: 250 MG/D
     Route: 065
  3. RISPERIDONE [Suspect]
     Dosage: FORTNIGHTLY LONG-ACTING INJECTIONS
     Route: 065

REACTIONS (5)
  - Pneumonitis [Recovering/Resolving]
  - Cardiac failure congestive [Recovering/Resolving]
  - Gait disturbance [Unknown]
  - Panic attack [Unknown]
  - Akathisia [Unknown]
